FAERS Safety Report 8091216-4 (Version None)
Quarter: 2012Q1

REPORT INFORMATION
  Report Type: 
  Country: None (occurrence: None)
  Receive Date: 20120129
  Receipt Date: 20111013
  Transmission Date: 20120608
  Serious: No
  Sender: FDA-Public Use
  Company Number: US-ABBOTT-11P-163-0868079-00

PATIENT
  Sex: Male

DRUGS (1)
  1. HUMIRA [Suspect]
     Indication: CROHN'S DISEASE
     Dates: start: 20110705

REACTIONS (5)
  - ABDOMINAL PAIN LOWER [None]
  - ABDOMINAL DISTENSION [None]
  - ARTHRALGIA [None]
  - FEELING ABNORMAL [None]
  - BACK PAIN [None]
